FAERS Safety Report 12480601 (Version 1)
Quarter: 2016Q2

REPORT INFORMATION
  Report Type: Spontaneous
  Country: US (occurrence: US)
  Receive Date: 20160620
  Receipt Date: 20160620
  Transmission Date: 20160815
  Serious: Yes (Other)
  Sender: FDA-Public Use
  Company Number: US-GLAXOSMITHKLINE-US2016GSK086935

PATIENT
  Age: 49 Year
  Sex: Male

DRUGS (1)
  1. TANZEUM [Suspect]
     Active Substance: ALBIGLUTIDE
     Indication: TYPE 2 DIABETES MELLITUS
     Dosage: 30 MG, WE
     Route: 042
     Dates: start: 201604

REACTIONS (9)
  - Device leakage [Unknown]
  - Device use error [Unknown]
  - Weight decreased [Unknown]
  - Foot operation [Unknown]
  - Accidental exposure to product [Unknown]
  - Diabetic ulcer [Unknown]
  - Device difficult to use [Unknown]
  - Underdose [Unknown]
  - Diarrhoea [Not Recovered/Not Resolved]

NARRATIVE: CASE EVENT DATE: 201604
